FAERS Safety Report 23123568 (Version 1)
Quarter: 2023Q4

REPORT INFORMATION
  Report Type: Spontaneous
  Country: NL (occurrence: NL)
  Receive Date: 20231030
  Receipt Date: 20231030
  Transmission Date: 20240110
  Serious: Yes (Other)
  Sender: FDA-Public Use
  Company Number: NL-LRB-00914635

PATIENT
  Age: 18 Year
  Sex: Female

DRUGS (2)
  1. AMOXICILLIN [Suspect]
     Active Substance: AMOXICILLIN
     Indication: Sinusitis
     Dosage: ELKE 8 UUR 500 MG
     Route: 065
     Dates: start: 20211101, end: 20211102
  2. FLUTICASONE PROPIONATE [Concomitant]
     Active Substance: FLUTICASONE PROPIONATE
     Indication: Product used for unknown indication
     Dosage: 27.5 MICROGRAM/DOSIS (~NEUSSPRAY, 27,5 ?G/DOSIS (MICROGRAM PER DOSIS))
     Route: 065

REACTIONS (1)
  - Hepatitis [Recovered/Resolved]
